FAERS Safety Report 22243994 (Version 3)
Quarter: 2023Q2

REPORT INFORMATION
  Report Type: Report from Study
  Country: FR (occurrence: FR)
  Receive Date: 20230424
  Receipt Date: 20230428
  Transmission Date: 20230721
  Serious: Yes (Life-Threatening)
  Sender: FDA-Public Use
  Company Number: FR-002147023-NVSC2023FR091271

PATIENT
  Sex: Male
  Weight: 101 kg

DRUGS (2)
  1. PLUVICTO [Suspect]
     Active Substance: LUTETIUM LU-177 VIPIVOTIDE TETRAXETAN
     Indication: Hormone-refractory prostate cancer
     Dosage: 7400 MBQ, ONCE
     Route: 042
     Dates: start: 20230203, end: 20230203
  2. PLUVICTO [Suspect]
     Active Substance: LUTETIUM LU-177 VIPIVOTIDE TETRAXETAN
     Dosage: 7400 MBQ, ONCE (2ND TREATMENT CYCLE)
     Route: 042
     Dates: start: 20230317, end: 20230317

REACTIONS (3)
  - Pathological fracture [Recovering/Resolving]
  - Metastases to bone [Recovering/Resolving]
  - Pain [Not Recovered/Not Resolved]

NARRATIVE: CASE EVENT DATE: 20230310
